FAERS Safety Report 7070007-7 (Version None)
Quarter: 2010Q4

REPORT INFORMATION
  Report Type: 
  Country: None (occurrence: None)
  Receive Date: 20101028
  Receipt Date: 20100727
  Transmission Date: 20110411
  Serious: Yes (Hospitalization)
  Sender: FDA-Public Use
  Company Number: US-WYE-H16445310

PATIENT
  Age: 46 Year
  Sex: Male

DRUGS (5)
  1. AMIODARONE [Suspect]
     Indication: VENTRICULAR TACHYCARDIA
     Route: 048
  2. AMIODARONE [Suspect]
     Indication: ATRIAL FIBRILLATION
     Dosage: 800 MG PER DAY AND THEN WAS TITRATED DOWN TO 200 MG A DAY
     Route: 048
  3. AMIODARONE [Suspect]
     Dosage: DECREASED TO HALF DOSE
  4. WARFARIN SODIUM [Concomitant]
     Dosage: DOSE AND FREQUENCY NOT SPECIFIED
     Route: 065
  5. METOPROLOL [Concomitant]

REACTIONS (5)
  - ARRHYTHMIA [None]
  - HAEMODIALYSIS [None]
  - PULMONARY ALVEOLAR HAEMORRHAGE [None]
  - RESPIRATORY FAILURE [None]
  - WEANING FAILURE [None]
